FAERS Safety Report 12637383 (Version 1)
Quarter: 2016Q3

REPORT INFORMATION
  Report Type: Spontaneous
  Country: US (occurrence: US)
  Receive Date: 20160809
  Receipt Date: 20160809
  Transmission Date: 20161109
  Serious: No
  Sender: FDA-Public Use
  Company Number: US-BEH-2016059252

PATIENT

DRUGS (1)
  1. PRIVIGEN [Suspect]
     Active Substance: HUMAN IMMUNOGLOBULIN G
     Indication: ILL-DEFINED DISORDER
     Dosage: 5 CONSECUTIVE DAYS

REACTIONS (2)
  - Antibody test positive [Unknown]
  - Immunisation [Unknown]
